FAERS Safety Report 6197600-8 (Version None)
Quarter: 2009Q2

REPORT INFORMATION
  Report Type: 
  Country: None (occurrence: None)
  Receive Date: 20090521
  Receipt Date: 20090511
  Transmission Date: 20091009
  Serious: Yes (Hospitalization, Other)
  Sender: FDA-Public Use
  Company Number: PHHY2009BR18584

PATIENT
  Age: 58 Year
  Sex: Female
  Weight: 86 kg

DRUGS (16)
  1. FORASEQ [Suspect]
     Indication: DYSPNOEA
     Dosage: BID
     Dates: start: 20060101
  2. FORASEQ [Suspect]
     Indication: CHEST PAIN
     Dosage: TID
     Dates: end: 20090508
  3. FORASEQ [Suspect]
     Indication: FATIGUE
  4. BUDESONIDE W/FORMOTEROL FUMARATE [Concomitant]
     Dosage: UNK
     Dates: start: 20060101
  5. CARVEDILOL [Concomitant]
     Dosage: 2 DF/DAY
     Dates: start: 20060101
  6. DILTIAZEM [Concomitant]
     Dosage: 3 DF DAILY
     Dates: start: 20060101
  7. FUROSEMIDE [Concomitant]
     Dosage: 1 DF DAILY
     Dates: start: 20060101
  8. AAS [Concomitant]
     Dosage: 1 DF DAILY
     Dates: start: 20060101
  9. ENALAPRIL [Concomitant]
     Dosage: 4 DF DAILY
     Dates: start: 20060101
  10. SPIRONOLACTONE [Concomitant]
     Dosage: 2 DF DAILY
     Dates: start: 20060101
  11. VITAMIN K [Concomitant]
     Dosage: 1 DF DAILY
     Dates: start: 20060101
  12. CALCIUM CARBONATE W/COLECALCIFEROL [Concomitant]
     Dosage: 1 DF DAILY
     Dates: start: 20060101
  13. CENTRUM SILVER [Concomitant]
     Dosage: 1 DF DAILY
     Dates: start: 20060101
  14. DIPYRONE [Concomitant]
     Dosage: 1 DF, Q6H
     Dates: start: 20060101
  15. CELLCEPT [Concomitant]
     Dosage: 1 DRP, Q4H
     Route: 045
     Dates: start: 20060101
  16. AEROLIN [Concomitant]
     Dosage: TID
     Dates: start: 20060101

REACTIONS (13)
  - ASTHMA [None]
  - BLOOD PRESSURE FLUCTUATION [None]
  - CHEST PAIN [None]
  - CONCOMITANT DISEASE AGGRAVATED [None]
  - CONGESTIVE CARDIOMYOPATHY [None]
  - DYSPNOEA [None]
  - EMPHYSEMA [None]
  - FATIGUE [None]
  - HEART RATE INCREASED [None]
  - HYPERTENSION [None]
  - LUNG INFECTION [None]
  - MALIGNANT MELANOMA [None]
  - SKIN NEOPLASM EXCISION [None]
